FAERS Safety Report 4641691-X (Version None)
Quarter: 2005Q2

REPORT INFORMATION
  Report Type: 
  Country: None (occurrence: None)
  Receive Date: 20050420
  Receipt Date: 20050413
  Transmission Date: 20051028
  Serious: Yes (Hospitalization)
  Sender: FDA-Public Use
  Company Number: B0377714A

PATIENT
  Age: 60 Year
  Sex: Male

DRUGS (2)
  1. TRIZIVIR [Suspect]
     Indication: HIV INFECTION
     Dates: start: 20030101
  2. COTRIM [Concomitant]

REACTIONS (16)
  - ABDOMINAL PAIN UPPER [None]
  - ANAEMIA [None]
  - ASTHENIA [None]
  - BLOOD CULTURE POSITIVE [None]
  - COUGH [None]
  - CULTURE STOOL POSITIVE [None]
  - DIARRHOEA [None]
  - EOSINOPHIL COUNT INCREASED [None]
  - ESCHERICHIA INFECTION [None]
  - IMMUNE RECONSTITUTION SYNDROME [None]
  - LUNG INFILTRATION [None]
  - NAUSEA [None]
  - PRURITUS [None]
  - PYREXIA [None]
  - STRONGYLOIDIASIS [None]
  - VOMITING [None]
